FAERS Safety Report 6104180-1 (Version None)
Quarter: 2009Q1

REPORT INFORMATION
  Report Type: 
  Country: None (occurrence: None)
  Receive Date: 20090227
  Receipt Date: 20090212
  Transmission Date: 20090719
  Serious: Yes (Hospitalization)
  Sender: FDA-Public Use
  Company Number: 8043337

PATIENT
  Age: 35 Year
  Sex: Female

DRUGS (2)
  1. KEPPRA [Suspect]
     Indication: EPILEPSY
     Dosage: 1000 MG 2/D PO
     Route: 048
     Dates: end: 20090126
  2. KEPPRA [Suspect]
     Indication: CASTLEMAN'S DISEASE
     Dosage: 400 MG 1/2W IV
     Route: 042
     Dates: start: 20090122

REACTIONS (3)
  - GRAND MAL CONVULSION [None]
  - HEAD INJURY [None]
  - PETIT MAL EPILEPSY [None]
